FAERS Safety Report 5196176-1 (Version None)
Quarter: 2007Q1

REPORT INFORMATION
  Report Type: 
  Country: None (occurrence: None)
  Receive Date: 20070102
  Receipt Date: 20061220
  Transmission Date: 20070707
  Serious: Yes (Death)
  Sender: FDA-Public Use
  Company Number: FR-GILEAD-2006-0010877

PATIENT
  Age: 26 Year
  Sex: Female
  Weight: 57 kg

DRUGS (2)
  1. DAUNOXOME [Suspect]
     Route: 042
     Dates: start: 20061110, end: 20061112
  2. ARACYTINE [Suspect]
     Route: 042
     Dates: start: 20061110, end: 20061112

REACTIONS (5)
  - CARDIAC FAILURE [None]
  - HEPATITIS [None]
  - RENAL FAILURE ACUTE [None]
  - RESPIRATORY DISTRESS [None]
  - SHOCK [None]
